FAERS Safety Report 17325922 (Version 2)
Quarter: 2020Q1

REPORT INFORMATION
  Report Type: Spontaneous
  Country: US (occurrence: US)
  Receive Date: 20200127
  Receipt Date: 20200129
  Transmission Date: 20200409
  Serious: Yes (Other)
  Sender: FDA-Public Use
  Company Number: US-PFIZER INC-2020034880

PATIENT
  Age: 72 Year
  Sex: Female
  Weight: 49.9 kg

DRUGS (2)
  1. RETACRIT [Suspect]
     Active Substance: EPOETIN ALFA-EPBX
     Indication: MYELOFIBROSIS
     Dosage: UNK  (EVERY 2 WEEKS (20 000U))
  2. RETACRIT [Suspect]
     Active Substance: EPOETIN ALFA-EPBX
     Dosage: 20000 IU, UNK (10,000 UNIT VIAL, 2 VIALS INJECTED INTO ABDOMEN EVERY 2 WEEKS PENDING RBC COUNT)
     Dates: start: 20191111

REACTIONS (8)
  - Swelling face [Recovered/Resolved]
  - Eye swelling [Recovered/Resolved]
  - Wrong technique in product usage process [Unknown]
  - Erythema [Recovered/Resolved]
  - Product use in unapproved indication [Unknown]
  - Eye pruritus [Recovered/Resolved]
  - Pruritus [Recovered/Resolved]
  - Off label use [Unknown]

NARRATIVE: CASE EVENT DATE: 20200111
